FAERS Safety Report 9646391 (Version 1)
Quarter: 2013Q4

REPORT INFORMATION
  Report Type: Report from Study
  Country: US (occurrence: US)
  Receive Date: 20131025
  Receipt Date: 20131025
  Transmission Date: 20140711
  Serious: Yes (Hospitalization)
  Sender: FDA-Public Use
  Company Number: US-ROCHE-1292902

PATIENT
  Age: 45 Year
  Sex: Male

DRUGS (4)
  1. AVASTIN [Suspect]
     Indication: COLORECTAL CANCER METASTATIC
     Route: 042
     Dates: start: 20130429, end: 20130603
  2. AVASTIN [Suspect]
     Route: 042
     Dates: start: 20130729
  3. 5-FU [Concomitant]
     Indication: COLORECTAL CANCER METASTATIC
     Route: 042
     Dates: start: 20130429, end: 20130603
  4. 5-FU [Concomitant]
     Route: 042
     Dates: start: 20130729

REACTIONS (4)
  - Vomiting [Recovered/Resolved]
  - Pain [Recovered/Resolved]
  - Large intestinal obstruction [Recovered/Resolved]
  - Splenomegaly [Not Recovered/Not Resolved]
